FAERS Safety Report 22610222 (Version 1)
Quarter: 2023Q2

REPORT INFORMATION
  Report Type: Spontaneous
  Country: SE (occurrence: SE)
  Receive Date: 20230616
  Receipt Date: 20230616
  Transmission Date: 20230722
  Serious: Yes (Hospitalization)
  Sender: FDA-Public Use
  Company Number: None

PATIENT
  Age: 67 Year
  Sex: Male

DRUGS (7)
  1. ENALAPRIL [Suspect]
     Active Substance: ENALAPRIL
     Indication: Product used for unknown indication
     Dosage: FOR ACTIVE INGREDIENT ENALAPRIL MALEATE THE STRENGTH IS 5 MILLIGRAMS, FOR ACTIVE INGREDIENT ENALAPRI
     Route: 065
  2. SPIRONOLACTONE [Suspect]
     Active Substance: SPIRONOLACTONE
     Indication: Product used for unknown indication
     Route: 065
     Dates: end: 202304
  3. FURIX [Concomitant]
     Indication: Product used for unknown indication
     Dosage: 2 TABLETS FOR BREAKFAST AND 1 TABLET FOR LUNCH
     Route: 065
     Dates: start: 20230328
  4. FENURIL [Concomitant]
     Indication: Product used for unknown indication
     Dosage: 1 DOSAGE FORMS DAILY; 1 APPLICATION 1 TIMES DAILY, FOR ACTIVE INGREDIENT SODIUM CHLORIDE THE STRENGT
     Route: 065
     Dates: start: 20230428
  5. JARDIANCE [Concomitant]
     Active Substance: EMPAGLIFLOZIN
     Indication: Product used for unknown indication
     Route: 065
     Dates: start: 20230217
  6. BISOPROLOL [Concomitant]
     Active Substance: BISOPROLOL
     Indication: Product used for unknown indication
     Dosage: FOR ACTIVE INGREDIENT BISOPROLOL FUMARATE THE STRENGTH IS 5 MILLIGRAMS, FOR ACTIVE INGREDIENT BISOPR
     Route: 065
     Dates: start: 20221128
  7. ELIQUIS [Concomitant]
     Active Substance: APIXABAN
     Indication: Product used for unknown indication
     Route: 065
     Dates: start: 20230426

REACTIONS (1)
  - Acute kidney injury [Recovering/Resolving]

NARRATIVE: CASE EVENT DATE: 20230401
